FAERS Safety Report 5725652-5 (Version None)
Quarter: 2008Q2

REPORT INFORMATION
  Report Type: 
  Country: None (occurrence: None)
  Receive Date: 20080501
  Receipt Date: 20080404
  Transmission Date: 20081010
  Serious: No
  Sender: FDA-Public Use
  Company Number: US-BOEHRINGER INGELHEIM GMBH, GERMANY-2008-BP-05287BP

PATIENT
  Age: 68 Year
  Sex: Male

DRUGS (13)
  1. CATAPRES-TTS-1 [Suspect]
     Indication: HYPERTENSION
     Dates: start: 20080123
  2. CATAPRES-TTS-1 [Suspect]
     Route: 061
  3. RANITIDINE [Concomitant]
  4. PERCOCET [Concomitant]
  5. PROMETHAZINE [Concomitant]
  6. AVODART [Concomitant]
  7. TRANSDERM SCOP [Concomitant]
  8. FLOMAX [Concomitant]
  9. LORAZEPAM [Concomitant]
  10. ALPRAZOLAM [Concomitant]
  11. VERAMYST [Concomitant]
  12. DARVON [Concomitant]
  13. LOTREL [Concomitant]

REACTIONS (1)
  - APPLICATION SITE URTICARIA [None]
